FAERS Safety Report 7399242-5 (Version None)
Quarter: 2011Q2

REPORT INFORMATION
  Report Type: 
  Country: None (occurrence: None)
  Receive Date: 20110407
  Receipt Date: 20110331
  Transmission Date: 20111010
  Serious: No
  Sender: FDA-Public Use
  Company Number: US-PFIZER INC-2011072300

PATIENT
  Sex: Male
  Weight: 99.773 kg

DRUGS (5)
  1. REMERON [Concomitant]
     Dosage: 30 MG, UNK
  2. KLONOPIN [Concomitant]
     Dosage: 1 MG, 2X/DAY
  3. ABILIFY [Concomitant]
     Dosage: 5 MG, UNK
  4. BUPROPION [Concomitant]
     Dosage: 300 MG, UNK
  5. PRISTIQ [Suspect]
     Indication: DEPRESSION
     Dosage: 50 MG, 1X/DAY
     Route: 048
     Dates: start: 20110301

REACTIONS (1)
  - DEPRESSED MOOD [None]
